FAERS Safety Report 5088027-0 (Version None)
Quarter: 2006Q3

REPORT INFORMATION
  Report Type: 
  Country: None (occurrence: None)
  Receive Date: 20060824
  Receipt Date: 20060821
  Transmission Date: 20061208
  Serious: Yes (Death, Hospitalization)
  Sender: FDA-Public Use
  Company Number: JP-BOEHRINGER INGELHEIM PHARMACEUTICALS, INC.-2006-DE-04389GD

PATIENT
  Age: 65 Year
  Sex: Female

DRUGS (1)
  1. MELOXICAM [Suspect]
     Indication: RHEUMATOID ARTHRITIS
     Route: 048

REACTIONS (6)
  - ABDOMINAL PAIN [None]
  - ANAEMIA [None]
  - ANAL HAEMORRHAGE [None]
  - COLITIS [None]
  - DIARRHOEA [None]
  - HAEMATOCHEZIA [None]
